FAERS Safety Report 7740813-1 (Version None)
Quarter: 2011Q3

REPORT INFORMATION
  Report Type: 
  Country: None (occurrence: None)
  Receive Date: 20110909
  Receipt Date: 20110831
  Transmission Date: 20111222
  Serious: Yes (Hospitalization, Other)
  Sender: FDA-Public Use
  Company Number: US-TYCO HEALTHCARE/MALLINCKRODT-T200901388

PATIENT
  Sex: Female
  Weight: 108 kg

DRUGS (11)
  1. BUSPIRONE [Concomitant]
     Dosage: UNK
  2. MAGNEVIST [Suspect]
     Indication: JOINT INJURY
  3. MAGNEVIST [Suspect]
     Indication: ARTHROGRAM
     Dosage: 1 ML, SINGLE
     Route: 014
     Dates: start: 20090429, end: 20090429
  4. VICODIN [Concomitant]
  5. OPTIRAY 160 [Suspect]
     Indication: X-RAY
     Dosage: UNK
     Route: 014
     Dates: start: 20090429, end: 20090429
  6. SODIUM CHLORIDE [Suspect]
     Indication: ARTHROGRAM
     Dosage: 10 ML, SINGLE
     Route: 014
     Dates: start: 20090429, end: 20090429
  7. RISPERDAL [Concomitant]
     Dosage: UNK
  8. SOMA [Concomitant]
     Dosage: UNK
  9. AMBIEN [Concomitant]
  10. LIDOCAINE [Suspect]
     Indication: X-RAY
     Dosage: 5 ML, SINGLE
     Route: 014
     Dates: start: 20090429, end: 20090429
  11. NAPROSYN [Concomitant]

REACTIONS (11)
  - WRONG TECHNIQUE IN DRUG USAGE PROCESS [None]
  - PROCEDURAL PAIN [None]
  - LYMPHOEDEMA [None]
  - LIGAMENT INJURY [None]
  - NORMOCHROMIC NORMOCYTIC ANAEMIA [None]
  - INCORRECT ROUTE OF DRUG ADMINISTRATION [None]
  - OFF LABEL USE [None]
  - SEPTIC ARTHRITIS STAPHYLOCOCCAL [None]
  - GAIT DISTURBANCE [None]
  - FALL [None]
  - JOINT SWELLING [None]
